FAERS Safety Report 5058813-1 (Version None)
Quarter: 2006Q3

REPORT INFORMATION
  Report Type: 
  Country: None (occurrence: None)
  Receive Date: 20060721
  Receipt Date: 20050817
  Transmission Date: 20061208
  Serious: No
  Sender: FDA-Public Use
  Company Number: US-AMGEN-US146837

PATIENT
  Sex: Male

DRUGS (14)
  1. EPOGEN [Suspect]
     Indication: DIALYSIS
     Dates: start: 20031201
  2. MEDICINALPRODUCT NOT SPECIFIED BY SENDER [Concomitant]
  3. MEDICINALPRODUCT NOT SPECIFIED BY SENDER [Concomitant]
  4. MEDICINALPRODUCT NOT SPECIFIED BY SENDER [Concomitant]
  5. MEDICINALPRODUCT NOT SPECIFIED BY SENDER [Concomitant]
  6. MEDICINALPRODUCT NOT SPECIFIED BY SENDER [Concomitant]
  7. MEDICINALPRODUCT NOT SPECIFIED BY SENDER [Concomitant]
  8. MEDICINALPRODUCT NOT SPECIFIED BY SENDER [Concomitant]
  9. MEDICINALPRODUCT NOT SPECIFIED BY SENDER [Concomitant]
  10. MEDICINALPRODUCT NOT SPECIFIED BY SENDER [Concomitant]
  11. SENSIPAR [Concomitant]
     Indication: HYPERPARATHYROIDISM SECONDARY
  12. MEDICINALPRODUCT NOT SPECIFIED BY SENDER [Concomitant]
  13. MEDICINALPRODUCT NOT SPECIFIED BY SENDER [Concomitant]
  14. MEDICINALPRODUCT NOT SPECIFIED BY SENDER [Concomitant]
     Dates: end: 20050801

REACTIONS (3)
  - FATIGUE [None]
  - FEELING COLD [None]
  - HAEMOGLOBIN DECREASED [None]
